FAERS Safety Report 21512533 (Version 1)
Quarter: 2022Q4

REPORT INFORMATION
  Report Type: Spontaneous
  Country: NO (occurrence: NO)
  Receive Date: 20221027
  Receipt Date: 20221027
  Transmission Date: 20230112
  Serious: Yes (Life-Threatening, Hospitalization, Other)
  Sender: FDA-Public Use
  Company Number: NO-ALS-000800

PATIENT
  Sex: Female

DRUGS (3)
  1. QUETIAPINE [Suspect]
     Active Substance: QUETIAPINE
     Indication: Psychotic disorder
     Dosage: (100 MG X 2 PER OS)
     Route: 048
  2. DIAZEPAM [Concomitant]
     Active Substance: DIAZEPAM
     Indication: Psychotic disorder
     Dosage: 5 MG UP TO 4 TIMES PER OS
     Route: 048
  3. SERTRALINE [Concomitant]
     Active Substance: SERTRALINE HYDROCHLORIDE
     Indication: Antidepressant therapy
     Dosage: 100 MG X 1
     Route: 065

REACTIONS (5)
  - Myxoedema coma [Unknown]
  - Hypothyroidism [Recovering/Resolving]
  - Hypertension [Unknown]
  - Sedation [Unknown]
  - Mental disorder [Unknown]
